FAERS Safety Report 4887480-2 (Version None)
Quarter: 2006Q1

REPORT INFORMATION
  Report Type: 
  Country: None (occurrence: None)
  Receive Date: 20060118
  Receipt Date: 20060105
  Transmission Date: 20060701
  Serious: Yes (Hospitalization)
  Sender: FDA-Public Use
  Company Number: 2006005326

PATIENT
  Age: 31 Year
  Sex: Male

DRUGS (2)
  1. ZIPRASIDONE HCL [Suspect]
     Indication: ILL-DEFINED DISORDER
     Dosage: NINE MONTHS AGO
  2. VENLAFAXINE HCL [Suspect]
     Indication: ILL-DEFINED DISORDER
     Dosage: NINE MONTHS AGO

REACTIONS (4)
  - HEART RATE INCREASED [None]
  - INTENTIONAL OVERDOSE [None]
  - SOMNOLENCE [None]
  - SUICIDE ATTEMPT [None]
